FAERS Safety Report 8540025-8 (Version None)
Quarter: 2012Q3

REPORT INFORMATION
  Report Type: 
  Country: None (occurrence: None)
  Receive Date: 20120713
  Receipt Date: 20120627
  Transmission Date: 20120928
  Serious: Yes (Life-Threatening)
  Sender: FDA-Public Use
  Company Number: 1332323

PATIENT
  Age: 68 Year
  Sex: Male

DRUGS (6)
  1. FLUOROURACIL [Concomitant]
  2. OXALIPLATIN [Suspect]
     Indication: LUNG DISORDER
     Dosage: 85 MG/M^2, UNKNOWN, INTRAVENOUS DRIP
     Route: 041
  3. OXALIPLATIN [Suspect]
     Indication: PELVIC DISCOMFORT
     Dosage: 85 MG/M^2, UNKNOWN, INTRAVENOUS DRIP
     Route: 041
  4. OXALIPLATIN [Suspect]
     Indication: DISEASE RECURRENCE
     Dosage: 85 MG/M^2, UNKNOWN, INTRAVENOUS DRIP
     Route: 041
  5. OXALIPLATIN [Suspect]
     Indication: LYMPHADENOPATHY
     Dosage: 85 MG/M^2, UNKNOWN, INTRAVENOUS DRIP
     Route: 041
  6. LEUCOVORIN CALCIUM [Concomitant]

REACTIONS (8)
  - CHILLS [None]
  - HYPERSENSITIVITY [None]
  - HAEMATEMESIS [None]
  - PYREXIA [None]
  - RECTAL HAEMORRHAGE [None]
  - THROMBOCYTOPENIA [None]
  - NAUSEA [None]
  - VOMITING [None]
